FAERS Safety Report 14604103 (Version 2)
Quarter: 2018Q1

REPORT INFORMATION
  Report Type: Spontaneous
  Country: US (occurrence: US)
  Receive Date: 20180306
  Receipt Date: 20180313
  Transmission Date: 20180509
  Serious: Yes (Other)
  Sender: FDA-Public Use
  Company Number: US-AKORN PHARMACEUTICALS-2018AKN00239

PATIENT
  Sex: Male
  Weight: 88.44 kg

DRUGS (2)
  1. MYORISAN [Suspect]
     Active Substance: ISOTRETINOIN
     Dosage: 40 MG, 1X/DAY
     Dates: start: 201801, end: 20180215
  2. MYORISAN [Suspect]
     Active Substance: ISOTRETINOIN
     Indication: ACNE
     Dosage: 40 MG, 2X/DAY
     Dates: start: 20171116, end: 201801

REACTIONS (4)
  - Depression [Recovered/Resolved]
  - Mood altered [Recovered/Resolved]
  - Eczema asteatotic [Unknown]
  - Tearfulness [Recovered/Resolved]
